FAERS Safety Report 5244057-7 (Version None)
Quarter: 2007Q1

REPORT INFORMATION
  Report Type: 
  Country: None (occurrence: None)
  Receive Date: 20070222
  Receipt Date: 20070212
  Transmission Date: 20070707
  Serious: Yes (Hospitalization)
  Sender: FDA-Public Use
  Company Number: GB-PFIZER INC-2007011905

PATIENT
  Age: 28 Year
  Sex: Male

DRUGS (3)
  1. SERTRALINE [Suspect]
     Indication: DEPRESSION
  2. HYPERICUM PERFORATUM [Interacting]
     Indication: DEPRESSION
     Dosage: TEXT:UNKNOWN
  3. TESTOSTERONE [Concomitant]

REACTIONS (2)
  - DRUG INTERACTION [None]
  - MANIA [None]
